FAERS Safety Report 6880692-8 (Version None)
Quarter: 2010Q3

REPORT INFORMATION
  Report Type: 
  Country: None (occurrence: None)
  Receive Date: 20100728
  Receipt Date: 20100712
  Transmission Date: 20110219
  Serious: Yes (Hospitalization)
  Sender: FDA-Public Use
  Company Number: US-BAYER-201015389NA

PATIENT
  Age: 32 Year
  Sex: Female
  Weight: 79 kg

DRUGS (6)
  1. YASMIN [Suspect]
     Indication: PRODUCT USED FOR UNKNOWN INDICATION
     Route: 048
     Dates: start: 20061201, end: 20070401
  2. YAZ [Suspect]
     Indication: PRODUCT USED FOR UNKNOWN INDICATION
     Route: 048
     Dates: start: 20061201
  3. DROSPIRENONE AND EHTINYL ESTRADIOL [Suspect]
     Indication: PRODUCT USED FOR UNKNOWN INDICATION
     Dates: start: 20061201
  4. YASMIN [Concomitant]
  5. NORFLEX [Concomitant]
  6. ANAPROX [Concomitant]
     Indication: PAIN
     Dosage: IT WILL NEED TO STOP WHEN HER INR IS THERAPEUTIC
     Dates: start: 20070401

REACTIONS (6)
  - DEEP VEIN THROMBOSIS [None]
  - DYSPNOEA [None]
  - HEADACHE [None]
  - OEDEMA PERIPHERAL [None]
  - PAIN IN EXTREMITY [None]
  - PULMONARY EMBOLISM [None]
